FAERS Safety Report 7729317-X (Version None)
Quarter: 2011Q3

REPORT INFORMATION
  Report Type: 
  Country: None (occurrence: None)
  Receive Date: 20110906
  Receipt Date: 20110826
  Transmission Date: 20111222
  Serious: Yes (Other)
  Sender: FDA-Public Use
  Company Number: CL-ASTELLAS-2011US005377

PATIENT
  Age: 43 Year
  Sex: Male

DRUGS (9)
  1. PROGRAF [Suspect]
     Indication: RENAL TRANSPLANT
     Dosage: UNK
     Route: 065
     Dates: start: 20080101
  2. MYFORTIC [Concomitant]
     Indication: RENAL TRANSPLANT
     Dosage: 760 MG, UID/QD
     Route: 065
     Dates: start: 20080101
  3. NYSTATIN [Concomitant]
     Indication: PROPHYLAXIS
     Dosage: UNK
     Route: 065
  4. ABACAVIR SULFATE AND LAMIVUDINE [Concomitant]
     Indication: HIV INFECTION
     Dosage: UNK
     Route: 065
  5. EFAVIRENZ [Concomitant]
     Indication: HIV INFECTION
     Dosage: 600 MG, UID/QD
     Route: 065
  6. PREDNISONE [Concomitant]
     Indication: RENAL TRANSPLANT
     Dosage: 5 MG, UID/QD
     Route: 065
  7. VALGANCICLOVIR [Concomitant]
     Indication: PROPHYLAXIS
     Dosage: UNK
     Route: 065
     Dates: start: 20080101
  8. SEPTRA [Concomitant]
     Indication: PROPHYLAXIS
     Dosage: UNK
     Route: 065
  9. MYFORTIC [Concomitant]
     Dosage: 1440 MG, UID/QD
     Route: 065

REACTIONS (1)
  - IGA NEPHROPATHY [None]
